FAERS Safety Report 7481330-6 (Version None)
Quarter: 2011Q2

REPORT INFORMATION
  Report Type: 
  Country: None (occurrence: None)
  Receive Date: 20110516
  Receipt Date: 20110502
  Transmission Date: 20111010
  Serious: Yes (Hospitalization)
  Sender: FDA-Public Use
  Company Number: PHHY2011US37271

PATIENT
  Sex: Male

DRUGS (2)
  1. OXYCONTIN [Concomitant]
  2. SANDOSTATIN LAR [Suspect]

REACTIONS (1)
  - PROCEDURAL COMPLICATION [None]
